FAERS Safety Report 6196834-6 (Version None)
Quarter: 2009Q2

REPORT INFORMATION
  Report Type: 
  Country: None (occurrence: None)
  Receive Date: 20090518
  Receipt Date: 20090507
  Transmission Date: 20091009
  Serious: Yes (Hospitalization, Other)
  Sender: FDA-Public Use
  Company Number: 60064

PATIENT
  Age: 67 Year
  Sex: Male

DRUGS (1)
  1. PROPOFOL            INJECTION EMULSION 10MG/ML (20ML) [Suspect]
     Dosage: 0.8 MG/KG/HR, 5.2MG/KG/HR

REACTIONS (2)
  - METABOLIC ACIDOSIS [None]
  - PROPOFOL INFUSION SYNDROME [None]
